FAERS Safety Report 16162105 (Version 3)
Quarter: 2025Q2

REPORT INFORMATION
  Report Type: Report from Study
  Country: NL (occurrence: NL)
  Receive Date: 20190405
  Receipt Date: 20250417
  Transmission Date: 20250717
  Serious: Yes (Other)
  Sender: AUROBINDO
  Company Number: None

PATIENT
  Sex: Male

DRUGS (8)
  1. ACETAMINOPHEN [Suspect]
     Active Substance: ACETAMINOPHEN
     Indication: Limb injury
     Route: 065
  2. ACETAMINOPHEN [Suspect]
     Active Substance: ACETAMINOPHEN
     Indication: Nerve injury
  3. PREDNISONE [Suspect]
     Active Substance: PREDNISONE
     Indication: Nerve injury
     Route: 065
  4. PREDNISONE [Suspect]
     Active Substance: PREDNISONE
     Indication: Limb injury
  5. PREGABALIN [Interacting]
     Active Substance: PREGABALIN
     Indication: Limb injury
     Dosage: 2 UNK, ONCE A DAY
     Route: 065
  6. PREGABALIN [Interacting]
     Active Substance: PREGABALIN
     Indication: Nerve injury
     Dosage: UNK, TWO TIMES A DAY
     Route: 065
  7. AMITRIPTYLINE HYDROCHLORIDE [Interacting]
     Active Substance: AMITRIPTYLINE HYDROCHLORIDE
     Indication: Nerve injury
     Route: 065
  8. AMITRIPTYLINE HYDROCHLORIDE [Interacting]
     Active Substance: AMITRIPTYLINE HYDROCHLORIDE
     Indication: Limb injury

REACTIONS (8)
  - Vision blurred [Unknown]
  - Colour blindness acquired [Not Recovered/Not Resolved]
  - Eye disorder [Unknown]
  - Visual impairment [Not Recovered/Not Resolved]
  - Blindness transient [Recovered/Resolved]
  - Astigmatism [Not Recovered/Not Resolved]
  - Eye irritation [Unknown]
  - Drug interaction [Unknown]
